FAERS Safety Report 17133365 (Version 2)
Quarter: 2019Q4

REPORT INFORMATION
  Report Type: Spontaneous
  Country: JP (occurrence: JP)
  Receive Date: 20191210
  Receipt Date: 20191219
  Transmission Date: 20200122
  Serious: Yes (Other)
  Sender: FDA-Public Use
  Company Number: JP-BRISTOL-MYERS SQUIBB COMPANY-BMS-2019-116085

PATIENT
  Age: 48 Year
  Sex: Male

DRUGS (1)
  1. KENACORT-A [Suspect]
     Active Substance: TRIAMCINOLONE ACETONIDE
     Indication: UVEITIS
     Dosage: STTA (20 MG/0.5 ML) WAS PERFORMED WITH A 27-G SHARP NEEDLE FOR LEFT EYE
     Route: 050

REACTIONS (2)
  - Open globe injury [Recovering/Resolving]
  - Intentional product use issue [Unknown]
